FAERS Safety Report 5157509-5 (Version None)
Quarter: 2006Q4

REPORT INFORMATION
  Report Type: 
  Country: None (occurrence: None)
  Receive Date: 20061127
  Receipt Date: 20061003
  Transmission Date: 20070319
  Serious: Yes (Other)
  Sender: FDA-Public Use
  Company Number: GB-GLAXOSMITHKLINE-B0440830A

PATIENT

DRUGS (1)
  1. ABACAVIR SULFATE [Suspect]
     Indication: HIV INFECTION
     Route: 048

REACTIONS (1)
  - COLITIS [None]
